FAERS Safety Report 6113190-X (Version None)
Quarter: 2009Q1

REPORT INFORMATION
  Report Type: 
  Country: None (occurrence: None)
  Receive Date: 20090312
  Receipt Date: 20090302
  Transmission Date: 20090719
  Serious: Yes (Other)
  Sender: FDA-Public Use
  Company Number: US-PFIZER INC-2009177958

PATIENT
  Sex: Female
  Weight: 58.967 kg

DRUGS (5)
  1. CLINDAMYCIN HCL [Suspect]
     Dosage: 300 MG, 2X/DAY
     Dates: start: 20090220
  2. CYTOMEL [Concomitant]
  3. DILTIAZEM HYDROCHLORIDE [Concomitant]
  4. AMITRIPTYLINE HYDROCHLORIDE [Concomitant]
  5. VITAMINS [Concomitant]

REACTIONS (3)
  - CHEST PAIN [None]
  - DRUG DOSE OMISSION [None]
  - DYSPHAGIA [None]
